FAERS Safety Report 5147728-6 (Version None)
Quarter: 2006Q4

REPORT INFORMATION
  Report Type: 
  Country: None (occurrence: None)
  Receive Date: 20061110
  Receipt Date: 20061025
  Transmission Date: 20070319
  Serious: Yes (Other)
  Sender: FDA-Public Use
  Company Number: PHBS2006BR16777

PATIENT
  Age: 32 Year
  Sex: Female
  Weight: 57 kg

DRUGS (3)
  1. TEGRETOL [Suspect]
     Indication: EPILEPSY
     Dosage: 500 MG/DAY
     Route: 048
  2. TEGRETOL [Suspect]
     Dosage: 200 MG, BID
     Route: 048
  3. NOVALGINA [Concomitant]
     Indication: HEADACHE
     Dosage: UNK, PRN

REACTIONS (5)
  - AMENORRHOEA [None]
  - FEELING HOT [None]
  - INFERTILITY FEMALE [None]
  - MENSTRUATION IRREGULAR [None]
  - PREMATURE MENOPAUSE [None]
